FAERS Safety Report 4906014-7 (Version None)
Quarter: 2006Q1

REPORT INFORMATION
  Report Type: 
  Country: None (occurrence: None)
  Receive Date: 20060206
  Receipt Date: 20060125
  Transmission Date: 20060701
  Serious: Yes (Death)
  Sender: FDA-Public Use
  Company Number: 200601IM000122

PATIENT
  Age: 64 Year
  Sex: Male

DRUGS (1)
  1. ACTIMMUNE (INTERFERON GAMMA-1B) [Suspect]
     Indication: IDIOPATHIC PULMONARY FIBROSIS
     Dosage: SUBCUTANEOUS
     Route: 058
     Dates: start: 20031003

REACTIONS (1)
  - DEATH [None]
